FAERS Safety Report 5647795-7 (Version None)
Quarter: 2008Q1

REPORT INFORMATION
  Report Type: 
  Country: None (occurrence: None)
  Receive Date: 20080303
  Receipt Date: 20080220
  Transmission Date: 20080703
  Serious: Yes (Other)
  Sender: FDA-Public Use
  Company Number: JP-PFIZER INC-2008016407

PATIENT
  Age: 67 Year
  Sex: Female

DRUGS (5)
  1. ZYVOX [Suspect]
     Indication: WOUND INFECTION STAPHYLOCOCCAL
     Route: 048
  2. ZYVOX [Suspect]
     Indication: WOUND INFECTION STAPHYLOCOCCAL
     Route: 042
  3. VANCOMYCIN [Concomitant]
     Dates: start: 20070101, end: 20070101
  4. TEICOPLANIN [Concomitant]
     Dates: start: 20070101, end: 20070706
  5. THEOPHYLLINE [Concomitant]

REACTIONS (3)
  - ANOREXIA [None]
  - HAEMOGLOBIN DECREASED [None]
  - VOMITING [None]
